FAERS Safety Report 7018920-0 (Version None)
Quarter: 2010Q3

REPORT INFORMATION
  Report Type: 
  Country: None (occurrence: None)
  Receive Date: 20100928
  Receipt Date: 20100916
  Transmission Date: 20110219
  Serious: Yes (Other)
  Sender: FDA-Public Use
  Company Number: US-WYE-H16137610

PATIENT
  Sex: Female
  Weight: 89.89 kg

DRUGS (8)
  1. PRISTIQ [Suspect]
     Indication: MAJOR DEPRESSION
     Route: 048
     Dates: start: 20100101, end: 20100701
  2. PRISTIQ [Suspect]
     Route: 048
     Dates: start: 20100712, end: 20100101
  3. SYNTHROID [Suspect]
     Dosage: UNKNOWN DOSE FROM UNSPECIFIED DATE TO JUL-2010
  4. DEPAKOTE [Suspect]
     Indication: BIPOLAR DISORDER
     Dosage: UNKNOWN
     Dates: start: 20100101, end: 20100701
  5. PEXEVA [Suspect]
     Dosage: UNKNOWN
     Dates: start: 20100101, end: 20100701
  6. AMBIEN [Concomitant]
  7. SUBOXONE [Suspect]
     Dates: end: 20100701
  8. SUBOXONE [Suspect]
     Dosage: ^DUE TO THE NAUSEA THE PATIENT COULD ONLY TAKE EVERY OTHER DAY INSTEAD OF FOUR TIMES DAILY^
     Dates: start: 20100701

REACTIONS (14)
  - CONDITION AGGRAVATED [None]
  - CRYING [None]
  - DECREASED APPETITE [None]
  - DRUG INEFFECTIVE [None]
  - DRUG WITHDRAWAL SYNDROME [None]
  - DYSGEUSIA [None]
  - HEADACHE [None]
  - INSOMNIA [None]
  - INTENTIONAL DRUG MISUSE [None]
  - MAJOR DEPRESSION [None]
  - NAUSEA [None]
  - NEGATIVE THOUGHTS [None]
  - SUICIDAL IDEATION [None]
  - TACHYPHRENIA [None]
